FAERS Safety Report 14516905 (Version 1)
Quarter: 2018Q1

REPORT INFORMATION
  Report Type: Spontaneous
  Country: US (occurrence: US)
  Receive Date: 20180212
  Receipt Date: 20180212
  Transmission Date: 20180509
  Serious: No
  Sender: FDA-Public Use
  Company Number: US-SUN PHARMACEUTICAL INDUSTRIES LTD-2017US-149698

PATIENT
  Sex: Female

DRUGS (9)
  1. GENOTROPIN CARTRIDGE [Concomitant]
     Indication: BLOOD GROWTH HORMONE
     Dosage: 1 MG, QD
     Route: 051
  2. CORTEF [Concomitant]
     Active Substance: HYDROCORTISONE
     Indication: CORTISOL ABNORMAL
     Dosage: 10 MG, QD MORNING
     Route: 048
     Dates: start: 199805
  3. CORTEF [Concomitant]
     Active Substance: HYDROCORTISONE
     Dosage: 5 MG, QD EVENING
     Route: 048
  4. PROMETRIUM [Concomitant]
     Active Substance: PROGESTERONE
     Indication: BLOOD OESTROGEN
     Dosage: 200 MG, QD
     Route: 048
     Dates: start: 199805, end: 2017
  5. GENOTROPIN [Concomitant]
     Active Substance: SOMATROPIN
     Indication: BLOOD GROWTH HORMONE
     Dosage: 1 MG, QD
     Route: 051
  6. DESMOPRESSIN [Suspect]
     Active Substance: DESMOPRESSIN
     Indication: HYPOTHYROIDISM
     Dosage: UNK UNK, BID
     Route: 045
     Dates: start: 199805
  7. PREMARIN [Concomitant]
     Active Substance: ESTROGENS, CONJUGATED
     Indication: BLOOD OESTROGEN
     Dosage: 1.25 MG, QD
     Route: 065
     Dates: start: 199805
  8. LEVOTHYROXINE. [Concomitant]
     Active Substance: LEVOTHYROXINE
     Indication: PRODUCT USED FOR UNKNOWN INDICATION
     Dosage: 175 ?G, QD
     Route: 065
  9. MEDROXY PROGESTERONE [Concomitant]
     Indication: PRODUCT USED FOR UNKNOWN INDICATION
     Dosage: UNK
     Route: 065
     Dates: start: 199805

REACTIONS (1)
  - Drug dose omission [Unknown]
